FAERS Safety Report 23873737 (Version 1)
Quarter: 2024Q2

REPORT INFORMATION
  Report Type: Spontaneous
  Country: US (occurrence: None)
  Receive Date: 20240517
  Receipt Date: 20240517
  Transmission Date: 20240715
  Serious: Yes (Hospitalization)
  Sender: FDA-Public Use
  Company Number: None

PATIENT
  Sex: Female

DRUGS (4)
  1. ICATIBANT [Suspect]
     Active Substance: ICATIBANT ACETATE
     Indication: Complement deficiency disease
     Dosage: FREQ: INJECT ONE 30MG SYRINGE SUBCUTANEOUSLY IN THE ABDOMINAL AREA AT ONSET OF HAE ATTACK. MAY REPEA
     Route: 058
     Dates: start: 20190823
  2. ATIVAN [Concomitant]
  3. OXYCODONE [Concomitant]
     Active Substance: OXYCODONE\OXYCODONE HYDROCHLORIDE
  4. ZOFRAN [Concomitant]
     Active Substance: ONDANSETRON HYDROCHLORIDE

REACTIONS (5)
  - Back pain [None]
  - Pneumonia [None]
  - Atrial fibrillation [None]
  - Spinal fracture [None]
  - Hereditary angioedema [None]
